FAERS Safety Report 9473534 (Version 1)
Quarter: 2013Q3

REPORT INFORMATION
  Report Type: Spontaneous
  Country: US (occurrence: US)
  Receive Date: 20130823
  Receipt Date: 20130823
  Transmission Date: 20140515
  Serious: No
  Sender: FDA-Public Use
  Company Number: US-GALDERMA-US13001378

PATIENT
  Age: 69 Year
  Sex: Female

DRUGS (9)
  1. METROGEL (METRONIDAZOLE) GEL, 1% [Suspect]
     Indication: ROSACEA
     Dosage: 1%
     Route: 061
     Dates: start: 20130419, end: 20130422
  2. PREVACID [Concomitant]
  3. ASPIRIN [Concomitant]
  4. VITAMIN D [Concomitant]
  5. FISH OIL [Concomitant]
  6. DERMABLEND [Concomitant]
  7. ALOE COLLAGEN MOISTURIZER [Concomitant]
  8. ALOE COLLAGEN CLEANSING CREAM [Concomitant]
  9. ALOE LIQUID MAKEUP [Concomitant]

REACTIONS (3)
  - Acne [Recovered/Resolved]
  - Condition aggravated [Recovered/Resolved]
  - Inappropriate schedule of drug administration [Recovered/Resolved]
